FAERS Safety Report 8935656 (Version 1)
Quarter: 2012Q4

REPORT INFORMATION
  Report Type: 
  Country: FR (occurrence: FR)
  Receive Date: 20121130
  Receipt Date: 20121130
  Transmission Date: 20130627
  Serious: Yes (Hospitalization)
  Sender: FDA-Public Use
  Company Number: FR-PFIZER INC-2012299261

PATIENT
  Age: 82 Year
  Sex: Male

DRUGS (8)
  1. CORDARONE [Suspect]
     Indication: ATRIAL FIBRILLATION
     Dosage: UNK
     Route: 048
     Dates: start: 201203, end: 20120505
  2. LASILIX [Suspect]
     Indication: ATRIAL FIBRILLATION
     Dosage: 20 mg, UNK
     Route: 042
     Dates: start: 20120427, end: 20120428
  3. LASILIX [Suspect]
     Dosage: UNK
     Route: 048
     Dates: start: 201203, end: 20120504
  4. PREVISCAN [Suspect]
     Indication: ATRIAL FIBRILLATION
     Dosage: UNK
     Route: 048
     Dates: start: 201203, end: 20120427
  5. HEMIGOXINE NATIVELLE [Suspect]
     Indication: ATRIAL FIBRILLATION
     Dosage: UNK
     Route: 048
     Dates: start: 201203, end: 20120428
  6. LOVENOX [Concomitant]
     Dosage: 7000 IU, 2x/day
     Dates: start: 20120427, end: 20120430
  7. LOVENOX [Concomitant]
     Dosage: 4000 IU, 2x/day
  8. ZYLORIC [Concomitant]
     Dosage: UNK

REACTIONS (3)
  - Thrombocytopenia [Recovering/Resolving]
  - Cytomegalovirus infection [Unknown]
  - Anaemia [Unknown]
